FAERS Safety Report 5313282-9 (Version None)
Quarter: 2007Q2

REPORT INFORMATION
  Report Type: 
  Country: None (occurrence: None)
  Receive Date: 20070501
  Receipt Date: 20070423
  Transmission Date: 20071010
  Serious: Yes (Other)
  Sender: FDA-Public Use
  Company Number: PHBS2007ZA07081

PATIENT
  Age: 31 Year
  Sex: Female

DRUGS (7)
  1. ZELNORM [Suspect]
     Indication: IRRITABLE BOWEL SYNDROME
     Dosage: 6 MG, BID
     Route: 048
     Dates: start: 20070419
  2. HISTAK [Concomitant]
  3. BUSCOPAN [Concomitant]
  4. SODIUM CITRATE [Concomitant]
  5. SODIUM BICARBONATE [Concomitant]
  6. CIPROFLOXACIN HCL [Concomitant]
  7. TRIPHASIL-28 [Concomitant]

REACTIONS (3)
  - CARDIAC DISORDER [None]
  - DYSPNOEA [None]
  - MUSCLE SPASMS [None]
